FAERS Safety Report 20519784 (Version 1)
Quarter: 2022Q1

REPORT INFORMATION
  Report Type: Spontaneous
  Country: CN (occurrence: CN)
  Receive Date: 20220225
  Receipt Date: 20220225
  Transmission Date: 20220424
  Serious: Yes (Other)
  Sender: FDA-Public Use
  Company Number: CN-PFIZER INC-202200292275

PATIENT
  Age: 3 Year
  Sex: Male
  Weight: 17.2 kg

DRUGS (2)
  1. CYTARABINE [Suspect]
     Active Substance: CYTARABINE
     Indication: Neoplasm
     Dosage: 2.13 G, 2X/DAY
     Route: 041
     Dates: start: 20220209, end: 20220211
  2. CYTARABINE [Suspect]
     Active Substance: CYTARABINE
     Indication: Chemotherapy

REACTIONS (3)
  - Pyrexia [Recovered/Resolved]
  - White blood cell count decreased [Not Recovered/Not Resolved]
  - Neutrophil percentage increased [Recovering/Resolving]

NARRATIVE: CASE EVENT DATE: 20220209
